FAERS Safety Report 16388598 (Version 1)
Quarter: 2019Q2

REPORT INFORMATION
  Report Type: Spontaneous
  Country: US (occurrence: US)
  Receive Date: 20190604
  Receipt Date: 20190604
  Transmission Date: 20190711
  Serious: No
  Sender: FDA-Public Use
  Company Number: US-EX USA HOLDINGS-EXHL20192261

PATIENT
  Age: 29 Year
  Sex: Female

DRUGS (2)
  1. BENZNIDAZOLE. [Suspect]
     Active Substance: BENZNIDAZOLE
     Indication: AMERICAN TRYPANOSOMIASIS
     Dosage: 2 TABLETS
     Route: 048
     Dates: start: 201904
  2. YAZ [Concomitant]
     Active Substance: DROSPIRENONE\ETHINYL ESTRADIOL
     Indication: PRODUCT USED FOR UNKNOWN INDICATION
     Dosage: UNKNOWN
     Route: 065

REACTIONS (2)
  - Nausea [Recovered/Resolved]
  - Intentional product use issue [None]

NARRATIVE: CASE EVENT DATE: 201904
